FAERS Safety Report 6554308-4 (Version None)
Quarter: 2010Q1

REPORT INFORMATION
  Report Type: 
  Country: None (occurrence: None)
  Receive Date: 20100127
  Receipt Date: 20100118
  Transmission Date: 20100710
  Serious: Yes (Other)
  Sender: FDA-Public Use
  Company Number: JP-JNJFOC-20100110149

PATIENT
  Age: 15 Year
  Sex: Female

DRUGS (4)
  1. CRAVIT [Suspect]
     Indication: THERMAL BURN
     Route: 048
  2. CRAVIT [Suspect]
     Indication: PURULENCE
     Route: 048
  3. THERADIA-C-PASTA [Concomitant]
     Route: 065
  4. ACTOSIN [Concomitant]
     Route: 065

REACTIONS (3)
  - ERYTHEMA [None]
  - EYE PRURITUS [None]
  - URTICARIA [None]
